FAERS Safety Report 4562522-2 (Version None)
Quarter: 2005Q1

REPORT INFORMATION
  Report Type: 
  Country: None (occurrence: None)
  Receive Date: 20050124
  Receipt Date: 20050110
  Transmission Date: 20050727
  Serious: Yes (Other)
  Sender: FDA-Public Use
  Company Number: HQWYE132421DEC04

PATIENT
  Age: 20 Year
  Sex: Female

DRUGS (1)
  1. ALESSE-28 (LEVONRGESTREL/ETHINYL ESTRADIOL/INERT, TABLET) [Suspect]
     Indication: CONTRACEPTION
     Dosage: 1 TABLET 1X PER 1 DAY, ORAL
     Route: 048
     Dates: start: 20041114

REACTIONS (10)
  - ANAPHYLACTIC REACTION [None]
  - BLOOD POTASSIUM DECREASED [None]
  - BLOOD SODIUM DECREASED [None]
  - BURNING SENSATION [None]
  - CHEST PAIN [None]
  - DYSSTASIA [None]
  - NAUSEA [None]
  - SLEEP DISORDER [None]
  - VOMITING [None]
  - WHITE BLOOD CELL COUNT INCREASED [None]
